FAERS Safety Report 10028435 (Version 5)
Quarter: 2014Q3

REPORT INFORMATION
  Report Type: Spontaneous
  Country: US (occurrence: None)
  Receive Date: 20140307
  Receipt Date: 20140922
  Transmission Date: 20150326
  Serious: Yes (Hospitalization)
  Sender: FDA-Public Use
  Company Number: 2014SGN00150

PATIENT
  Age: 52 Year
  Sex: Female
  Weight: 58.2 kg

DRUGS (15)
  1. CITALOPRAM (CITALOPRAM) [Concomitant]
     Active Substance: CITALOPRAM HYDROBROMIDE
  2. RITUXIMAB [Suspect]
     Active Substance: RITUXIMAB
     Indication: DIFFUSE LARGE B-CELL LYMPHOMA
     Dosage: 375 MG/M2, Q21D, INTRAVENOUS
     Route: 042
     Dates: start: 20130916, end: 20140117
  3. AMLODIPINE [Concomitant]
     Active Substance: AMLODIPINE BESYLATE
  4. EMEND [Concomitant]
     Active Substance: APREPITANT
  5. OMEPRAZOLE (OMEPRAZOLE) [Concomitant]
     Active Substance: OMEPRAZOLE
     Indication: DIFFUSE LARGE B-CELL LYMPHOMA
  6. CYCLOPHOSPHAMIDE. [Suspect]
     Active Substance: CYCLOPHOSPHAMIDE
     Indication: DIFFUSE LARGE B-CELL LYMPHOMA
     Dosage: 750 MG/M2, Q21D, INTRAVENOUS
     Route: 042
     Dates: start: 20130916, end: 20140117
  7. PREDNISONE. [Suspect]
     Active Substance: PREDNISONE
     Indication: DIFFUSE LARGE B-CELL LYMPHOMA
     Dosage: 100 MG, QCYCLE, ORAL
     Route: 048
     Dates: start: 20130916, end: 20140117
  8. VINCRISTINE [Suspect]
     Active Substance: VINCRISTINE
     Indication: DIFFUSE LARGE B-CELL LYMPHOMA
     Dosage: 1.4 MG/M2, Q21D, INTRAVENOUS
     Route: 042
     Dates: start: 20130916, end: 20140117
  9. OXYCODONE (OXYCODONE) [Concomitant]
     Active Substance: OXYCODONE
     Indication: DIFFUSE LARGE B-CELL LYMPHOMA
  10. PROCHLORPERAZINE (PROCHLORPERAZINE) [Concomitant]
     Active Substance: PROCHLORPERAZINE
     Indication: DIFFUSE LARGE B-CELL LYMPHOMA
  11. BRENTUXIMAB VEDOTIN [Suspect]
     Active Substance: BRENTUXIMAB VEDOTIN
     Indication: DIFFUSE LARGE B-CELL LYMPHOMA
     Dosage: 1.8 MG/M2, Q21D, INTRAVENOUS?
     Route: 042
     Dates: start: 20130917, end: 20140117
  12. ALBUTEROL (ALBUTEROL) [Concomitant]
     Active Substance: ALBUTEROL
  13. TYLENOL [Concomitant]
     Active Substance: ACETAMINOPHEN
     Indication: DIFFUSE LARGE B-CELL LYMPHOMA
  14. DOXORUBICIN [Suspect]
     Active Substance: DOXORUBICIN
     Indication: DIFFUSE LARGE B-CELL LYMPHOMA
     Dosage: 50 MG/M2, Q21D, INTRAVENOUS
     Route: 042
     Dates: start: 20130916, end: 20140117
  15. LORAZEPAM (LORAZEPAM) [Concomitant]
     Active Substance: LORAZEPAM

REACTIONS (5)
  - Atelectasis [None]
  - Bronchopneumonia [None]
  - Lung infection [None]
  - Bronchiolitis [None]
  - Respiratory tract infection [None]

NARRATIVE: CASE EVENT DATE: 20140214
